FAERS Safety Report 6607421-7 (Version None)
Quarter: 2010Q1

REPORT INFORMATION
  Report Type: 
  Country: None (occurrence: None)
  Receive Date: 20100301
  Receipt Date: 20100217
  Transmission Date: 20100710
  Serious: Yes (Death, Hospitalization, Other)
  Sender: FDA-Public Use
  Company Number: GB-ELI_LILLY_AND_COMPANY-GB200911002687

PATIENT
  Sex: Female
  Weight: 86.8 kg

DRUGS (11)
  1. PEMETREXED [Suspect]
     Indication: NON-SMALL CELL LUNG CANCER STAGE III
     Dosage: 1000 MG, ONCE EVERY 21 DAYS
     Route: 042
     Dates: start: 20091016, end: 20091106
  2. CISPLATIN [Suspect]
     Indication: NON-SMALL CELL LUNG CANCER STAGE III
     Dosage: 149 MG, UNK
     Route: 042
     Dates: start: 20091016, end: 20091106
  3. OXYCONTIN [Concomitant]
     Indication: PAIN
     Dates: start: 20091103
  4. OXYCODONE HCL [Concomitant]
     Indication: PAIN
     Dates: start: 20091103
  5. PARACETAMOL [Concomitant]
     Indication: PAIN
     Dates: start: 20090930
  6. EMEND [Concomitant]
     Route: 048
  7. HYDROXYCHLOROQUINE SULFATE [Concomitant]
     Indication: SYSTEMIC LUPUS ERYTHEMATOSUS
     Dates: start: 20050101
  8. DEXAMETHASONE [Concomitant]
     Indication: PROPHYLAXIS
     Dosage: 4 MG, 2/D FOR 3 DAYS AROUND TREATMENT
     Dates: start: 20091015, end: 20091105
  9. DEXAMETHASONE [Concomitant]
     Dosage: 4 MG, 2/D WHEN ABLE
     Dates: start: 20091124
  10. FOLIC ACID [Concomitant]
     Indication: PROPHYLAXIS
     Dosage: 400 UG, DAILY (1/D)
     Route: 048
     Dates: start: 20091009, end: 20091107
  11. VITAMIN B-12 [Concomitant]
     Indication: PROPHYLAXIS
     Dosage: 1000 MG, UNK
     Dates: start: 20091009, end: 20091009

REACTIONS (10)
  - DEATH [None]
  - DECREASED APPETITE [None]
  - DEHYDRATION [None]
  - HAEMOGLOBIN DECREASED [None]
  - NAUSEA [None]
  - ORAL CANDIDIASIS [None]
  - RASH PRURITIC [None]
  - RENAL FAILURE ACUTE [None]
  - VOMITING [None]
  - WEIGHT DECREASED [None]
